FAERS Safety Report 13738775 (Version 1)
Quarter: 2017Q3

REPORT INFORMATION
  Report Type: Spontaneous
  Country: US (occurrence: US)
  Receive Date: 20170710
  Receipt Date: 20170710
  Transmission Date: 20171127
  Serious: Yes (Other)
  Sender: FDA-Public Use
  Company Number: US-SAOL THERAPEUTICS-0701114753

PATIENT
  Sex: Male

DRUGS (1)
  1. LIORESAL [Suspect]
     Active Substance: BACLOFEN
     Indication: MUSCLE SPASTICITY
     Dosage: UNK

REACTIONS (12)
  - Drug withdrawal syndrome [Unknown]
  - Hallucination [Unknown]
  - Device failure [Unknown]
  - Constipation [Unknown]
  - Depression [Unknown]
  - Headache [Unknown]
  - Urinary retention [Unknown]
  - Dysuria [Unknown]
  - Asthenia [Unknown]
  - Anxiety [Unknown]
  - Pain in extremity [Unknown]
  - Abdominal pain upper [Unknown]
